FAERS Safety Report 5093594-7 (Version None)
Quarter: 2006Q3

REPORT INFORMATION
  Report Type: 
  Country: None (occurrence: None)
  Receive Date: 20060829
  Receipt Date: 20060814
  Transmission Date: 20061208
  Serious: Yes (Hospitalization)
  Sender: FDA-Public Use
  Company Number: 2006BH012953

PATIENT
  Age: 67 Year
  Sex: Female

DRUGS (6)
  1. DEXAMETHASONE TAB [Suspect]
     Indication: PREMEDICATION
     Dosage: SEE IMAGE
     Route: 042
  2. CYCLOPHOSPHAMIDE [Suspect]
     Indication: BREAST CANCER
  3. DOXORUBICIN HCL [Suspect]
     Indication: BREAST CANCER
  4. DEXAMETHASONE TAB [Suspect]
     Indication: PREMEDICATION
     Dosage: SEE IMAGE
     Route: 048
  5. PACLITAXEL [Suspect]
     Indication: BREAST CANCER
     Dosage: EVERY 2 WK  4 CYCLE
  6. NEULASTA [Suspect]
     Indication: BREAST CANCER
     Dosage: 6 MG;SC
     Route: 058

REACTIONS (2)
  - DYSPNOEA [None]
  - WHITE BLOOD CELL COUNT INCREASED [None]
